FAERS Safety Report 8178261-5 (Version None)
Quarter: 2012Q1

REPORT INFORMATION
  Report Type: 
  Country: None (occurrence: None)
  Receive Date: 20120301
  Receipt Date: 20120221
  Transmission Date: 20120608
  Serious: Yes (Hospitalization)
  Sender: FDA-Public Use
  Company Number: CA-JNJFOC-20120209085

PATIENT
  Sex: Male
  Weight: 121 kg

DRUGS (6)
  1. USTEKINUMAB [Suspect]
     Indication: PSORIASIS
     Dates: start: 20100201
  2. LORAZEPAM [Concomitant]
  3. CYCLOBENZAPRINE [Concomitant]
  4. HYDROCHLOROTHIAZIDE [Concomitant]
  5. DIAZEPAM [Concomitant]
  6. TYLENOL W/ CODEINE NO. 3 [Concomitant]

REACTIONS (1)
  - CEREBROVASCULAR ACCIDENT [None]
